FAERS Safety Report 4973480-0 (Version None)
Quarter: 2006Q2

REPORT INFORMATION
  Report Type: 
  Country: None (occurrence: None)
  Receive Date: 20060414
  Receipt Date: 20060207
  Transmission Date: 20061013
  Serious: Yes (Hospitalization)
  Sender: FDA-Public Use
  Company Number: FI-SANOFI-SYNTHELABO-F01200600323

PATIENT
  Sex: Female

DRUGS (7)
  1. OXALIPLATIN [Suspect]
     Indication: COLON CANCER
     Route: 042
     Dates: start: 20060130, end: 20060130
  2. FLUOROURACIL [Suspect]
     Dosage: 632 MG IV BOLUS AND 1896 MG CONTINUOUS INFUSION Q2W
     Route: 042
     Dates: start: 20060130, end: 20060131
  3. LEUCOVORIN [Suspect]
     Route: 042
  4. AMARYL [Concomitant]
     Dates: start: 19990615
  5. METFORMIN [Concomitant]
  6. ATACAND [Concomitant]
  7. METOPRAM [Concomitant]

REACTIONS (1)
  - INFECTION [None]
